FAERS Safety Report 17917109 (Version 1)
Quarter: 2020Q2

REPORT INFORMATION
  Report Type: Spontaneous
  Country: TR (occurrence: TR)
  Receive Date: 20200619
  Receipt Date: 20200619
  Transmission Date: 20200714
  Serious: Yes (Other)
  Sender: FDA-Public Use
  Company Number: TR-PFIZER INC-2020237343

PATIENT
  Age: 18 Year
  Sex: Male

DRUGS (2)
  1. LYRICA [Suspect]
     Active Substance: PREGABALIN
     Dosage: HIGH DOSE
  2. LYRICA [Suspect]
     Active Substance: PREGABALIN
     Dosage: 2400 MG

REACTIONS (2)
  - Overdose [Unknown]
  - Seizure [Unknown]
